FAERS Safety Report 6834911-4 (Version None)
Quarter: 2010Q3

REPORT INFORMATION
  Report Type: 
  Country: None (occurrence: None)
  Receive Date: 20100712
  Receipt Date: 20070417
  Transmission Date: 20110219
  Serious: No
  Sender: FDA-Public Use
  Company Number: US-PFIZER INC-2007031518

PATIENT
  Sex: Female
  Weight: 88.636 kg

DRUGS (4)
  1. CHANTIX [Suspect]
     Indication: SMOKING CESSATION THERAPY
     Dates: start: 20070407
  2. PROTONIX [Concomitant]
     Indication: GASTRIC ULCER
  3. HYDROCHLOROTHIAZIDE [Concomitant]
     Indication: BLOOD PRESSURE
  4. ENALAPRIL MALEATE [Concomitant]

REACTIONS (2)
  - NAUSEA [None]
  - SOMNOLENCE [None]
